FAERS Safety Report 6695431-3 (Version None)
Quarter: 2010Q2

REPORT INFORMATION
  Report Type: 
  Country: None (occurrence: None)
  Receive Date: 20100422
  Receipt Date: 20100422
  Transmission Date: 20101027
  Serious: Yes (Other)
  Sender: FDA-Public Use
  Company Number: None

PATIENT
  Age: 13 Year
  Sex: Male
  Weight: 40.8237 kg

DRUGS (4)
  1. ADVAIR DISKUS 100/50 [Suspect]
     Indication: ASTHMA
     Dosage: 1 PUFF 1 X A DAY ORAL
     Route: 048
  2. PREDNISONE [Suspect]
     Indication: ASTHMA
     Dosage: PREDNISONE 2/20MG. A DAY ORAL
     Route: 048
  3. ALBUTEROL [Concomitant]
  4. ATREVENT [Concomitant]

REACTIONS (5)
  - ANXIETY [None]
  - CRYING [None]
  - HALLUCINATION, AUDITORY [None]
  - HALLUCINATION, VISUAL [None]
  - TREMOR [None]
